FAERS Safety Report 12287098 (Version 1)
Quarter: 2016Q2

REPORT INFORMATION
  Report Type: Spontaneous
  Country: TN (occurrence: TN)
  Receive Date: 20160420
  Receipt Date: 20160420
  Transmission Date: 20160815
  Serious: Yes (Death, Other)
  Sender: FDA-Public Use
  Company Number: TN-PFIZER INC-2016217514

PATIENT
  Age: 82 Year
  Sex: Male

DRUGS (3)
  1. TYGACIL [Suspect]
     Active Substance: TIGECYCLINE
     Dosage: 100 MG, UNK
  2. TYGACIL [Suspect]
     Active Substance: TIGECYCLINE
     Indication: PNEUMONITIS
     Dosage: 100 MG, 2X/DAY
  3. COLI FAGINA S [Concomitant]
     Indication: PNEUMONITIS
     Dosage: 4.5 MILLIONS, 2X/DAY

REACTIONS (5)
  - Death [Fatal]
  - Incorrect dosage administered [Unknown]
  - Prothrombin level decreased [Unknown]
  - Hepatocellular injury [Unknown]
  - Cholestasis [Unknown]

NARRATIVE: CASE EVENT DATE: 20160414
